FAERS Safety Report 8386746-1 (Version None)
Quarter: 2012Q2

REPORT INFORMATION
  Report Type: 
  Country: None (occurrence: None)
  Receive Date: 20120525
  Receipt Date: 20120425
  Transmission Date: 20120825
  Serious: No
  Sender: FDA-Public Use
  Company Number: US-PFIZER INC-2012102778

PATIENT
  Sex: Female
  Weight: 61.2 kg

DRUGS (10)
  1. LUMIGAN [Suspect]
     Indication: OPEN ANGLE GLAUCOMA
     Dosage: UNK
     Route: 047
  2. CELEBREX [Concomitant]
     Dosage: UNK
  3. LATANOPROST [Suspect]
     Indication: OPEN ANGLE GLAUCOMA
     Dosage: 1 GTT IN THE RIGHT EYE, 1X/DAY
     Route: 047
     Dates: start: 20111101, end: 20120316
  4. CHONDROITIN/GLUCOSAMINE [Concomitant]
     Dosage: UNK
  5. FUROSEMIDE [Concomitant]
     Dosage: UNK
  6. FOLIC ACID [Concomitant]
  7. FISH OIL [Concomitant]
     Dosage: UNK
  8. AMLODIPINE [Concomitant]
     Indication: HYPERTENSION
     Dosage: 10 MG, DAILY
  9. PRILOSEC [Concomitant]
     Dosage: UNK
  10. CALCIUM WITH VITAMIN D [Concomitant]
     Dosage: UNK

REACTIONS (3)
  - INTRAOCULAR PRESSURE TEST ABNORMAL [None]
  - VISUAL ACUITY REDUCED [None]
  - EYE PAIN [None]
